FAERS Safety Report 5328707-2 (Version None)
Quarter: 2007Q2

REPORT INFORMATION
  Report Type: 
  Country: None (occurrence: None)
  Receive Date: 20070518
  Receipt Date: 20070511
  Transmission Date: 20071010
  Serious: Yes (Other)
  Sender: FDA-Public Use
  Company Number: D0053260A

PATIENT
  Age: 74 Year
  Sex: Female

DRUGS (3)
  1. LAMICTAL [Suspect]
     Dosage: 100MG PER DAY
     Route: 048
     Dates: start: 20051201
  2. CYMBALTA [Concomitant]
     Dosage: 60MG PER DAY
     Route: 065
     Dates: start: 20050901
  3. ASPIRIN [Concomitant]
     Route: 065

REACTIONS (3)
  - BRONCHITIS [None]
  - PNEUMONIA [None]
  - VAGINAL HAEMORRHAGE [None]
